FAERS Safety Report 12604377 (Version 1)
Quarter: 2016Q3

REPORT INFORMATION
  Report Type: Other
  Country: US (occurrence: US)
  Receive Date: 20160728
  Receipt Date: 20160728
  Transmission Date: 20161109
  Serious: Yes (Other)
  Sender: FDA-Public Use
  Company Number: US-SHIRE-US201602965

PATIENT
  Age: 57 Year
  Sex: Female
  Weight: 87.98 kg

DRUGS (1)
  1. NATPARA (PARATHYROID HORMONE) [Suspect]
     Active Substance: PARATHYROID HORMONE
     Indication: HYPOPARATHYROIDISM
     Dosage: 50 ?G, 1X/DAY:QD
     Route: 058
     Dates: start: 20160307, end: 20160311

REACTIONS (8)
  - Dysgeusia [Unknown]
  - Vomiting [Not Recovered/Not Resolved]
  - Pain [Unknown]
  - Bone disorder [Unknown]
  - Urinary retention [Unknown]
  - Headache [Unknown]
  - Diarrhoea [Not Recovered/Not Resolved]
  - Renal disorder [Unknown]

NARRATIVE: CASE EVENT DATE: 201603
